FAERS Safety Report 17194332 (Version 2)
Quarter: 2020Q1

REPORT INFORMATION
  Report Type: Spontaneous
  Country: US (occurrence: US)
  Receive Date: 20191224
  Receipt Date: 20200201
  Transmission Date: 20200409
  Serious: Yes (Hospitalization)
  Sender: FDA-Public Use
  Company Number: US-ROCHE-2436455

PATIENT
  Sex: Female

DRUGS (11)
  1. FAMOTIDINE. [Concomitant]
     Active Substance: FAMOTIDINE
  2. FERROUS SULFATE. [Concomitant]
     Active Substance: FERROUS SULFATE
  3. MONTELUKAST SODIUM. [Concomitant]
     Active Substance: MONTELUKAST SODIUM
  4. PANTOPRAZOLE SODIUM. [Concomitant]
     Active Substance: PANTOPRAZOLE SODIUM
  5. MIRALAX [Concomitant]
     Active Substance: POLYETHYLENE GLYCOL 3350
  6. SILDENAFIL CITRATE. [Concomitant]
     Active Substance: SILDENAFIL CITRATE
  7. ESBRIET [Suspect]
     Active Substance: PIRFENIDONE
     Indication: CHRONIC OBSTRUCTIVE PULMONARY DISEASE
     Dosage: 3 TAB 3 TIMES A DAY
     Route: 048
     Dates: start: 20190724
  8. TYLENOL [Concomitant]
     Active Substance: ACETAMINOPHEN
  9. LEVOTHYROXINE. [Concomitant]
     Active Substance: LEVOTHYROXINE
  10. SIMVASTATIN. [Concomitant]
     Active Substance: SIMVASTATIN
  11. SODIUM CHLORIDE. [Concomitant]
     Active Substance: SODIUM CHLORIDE

REACTIONS (6)
  - Idiopathic pulmonary fibrosis [Not Recovered/Not Resolved]
  - Nausea [Unknown]
  - Off label use [Unknown]
  - Atrial fibrillation [Not Recovered/Not Resolved]
  - Pneumonia [Not Recovered/Not Resolved]
  - Intentional product use issue [Unknown]
